FAERS Safety Report 6278952-7 (Version None)
Quarter: 2009Q3

REPORT INFORMATION
  Report Type: 
  Country: None (occurrence: None)
  Receive Date: 20090723
  Receipt Date: 20090715
  Transmission Date: 20100115
  Serious: Yes (Other)
  Sender: FDA-Public Use
  Company Number: US-ELI_LILLY_AND_COMPANY-US200907004783

PATIENT
  Sex: Female

DRUGS (5)
  1. BYETTA [Suspect]
     Indication: DIABETES MELLITUS
     Dosage: 10 UG, 2/D
     Route: 058
     Dates: start: 20070101
  2. METOPROLOL SUCCINATE [Concomitant]
     Indication: CARDIAC DISORDER
     Dosage: 25 MG, DAILY (1/D)
     Route: 048
     Dates: start: 20090201
  3. GLIMEPIRIDE [Concomitant]
     Indication: DIABETES MELLITUS
     Dosage: 2 MG, DAILY (1/D)
     Route: 048
  4. ANTIHYPERTENSIVES [Concomitant]
     Indication: BLOOD PRESSURE
     Dosage: UNK, UNKNOWN
  5. VERAPAMIL [Concomitant]
     Indication: CARDIAC DISORDER
     Dosage: UNK, UNKNOWN

REACTIONS (19)
  - BLOOD GLUCOSE INCREASED [None]
  - BLOOD URINE PRESENT [None]
  - CARDIAC DISORDER [None]
  - CHOKING [None]
  - CONDUCTION DISORDER [None]
  - COUGH [None]
  - DRUG INEFFECTIVE [None]
  - DYSPNOEA [None]
  - DYSURIA [None]
  - FATIGUE [None]
  - FLANK PAIN [None]
  - INSOMNIA [None]
  - POLLAKIURIA [None]
  - RESPIRATORY TRACT CONGESTION [None]
  - SENSATION OF PRESSURE [None]
  - STRESS [None]
  - TENSION [None]
  - VITAMIN D DEFICIENCY [None]
  - WHEEZING [None]
